FAERS Safety Report 9194674 (Version 1)
Quarter: 2013Q1

REPORT INFORMATION
  Report Type: Spontaneous
  Country: US (occurrence: US)
  Receive Date: 20130328
  Receipt Date: 20130328
  Transmission Date: 20140127
  Serious: No
  Sender: FDA-Public Use
  Company Number: US-ALLERGAN-1212050US

PATIENT
  Age: 50 Year
  Sex: Female

DRUGS (1)
  1. LATISSE 0.03% [Suspect]
     Indication: GROWTH OF EYELASHES
     Dosage: UNK UNK, QHS
     Route: 061
     Dates: start: 201206

REACTIONS (6)
  - Incorrect dose administered [Unknown]
  - Eyelash discolouration [Not Recovered/Not Resolved]
  - Eyelids pruritus [Not Recovered/Not Resolved]
  - Erythema of eyelid [Recovered/Resolved]
  - Eyelid irritation [Recovered/Resolved]
  - Drug ineffective [Unknown]
